FAERS Safety Report 7528132-X (Version None)
Quarter: 2011Q2

REPORT INFORMATION
  Report Type: 
  Country: None (occurrence: None)
  Receive Date: 20110607
  Receipt Date: 20100625
  Transmission Date: 20111010
  Serious: No
  Sender: FDA-Public Use
  Company Number: US-ASTRAZENECA-2010SE29819

PATIENT
  Age: 57 Year
  Sex: Female
  Weight: 95.3 kg

DRUGS (9)
  1. GLUCOSAMINE [Concomitant]
  2. VITAMIN B COMPLEX CAP [Concomitant]
  3. ASPIRIN [Concomitant]
  4. ZYRTEC [Concomitant]
  5. PRILOSEC [Suspect]
     Indication: GASTROOESOPHAGEAL REFLUX DISEASE
     Route: 048
  6. TRILIPIX [Concomitant]
  7. PRILOSEC OTC [Suspect]
     Indication: GASTROOESOPHAGEAL REFLUX DISEASE
     Route: 048
  8. FISH OIL [Concomitant]
  9. SIMVASTATIN [Concomitant]

REACTIONS (1)
  - UPPER LIMB FRACTURE [None]
